FAERS Safety Report 9130321 (Version 3)
Quarter: 2013Q2

REPORT INFORMATION
  Report Type: Spontaneous
  Country: US (occurrence: US)
  Receive Date: 20130228
  Receipt Date: 20130510
  Transmission Date: 20140414
  Serious: No
  Sender: FDA-Public Use
  Company Number: US-009507513-1302USA012969

PATIENT
  Sex: Female

DRUGS (2)
  1. ASMANEX TWISTHALER [Suspect]
     Dosage: 220 MCG/TWO PUFFS ONCE DAILY
     Route: 048
     Dates: start: 201301
  2. ASMANEX TWISTHALER [Suspect]
     Dosage: 220 MCG/TWO PUFFS ONCE DAILY

REACTIONS (2)
  - Drug dose omission [Unknown]
  - Product quality issue [Unknown]
